FAERS Safety Report 15456455 (Version 1)
Quarter: 2018Q3

REPORT INFORMATION
  Report Type: Spontaneous
  Country: US (occurrence: US)
  Receive Date: 20180928
  Receipt Date: 20180928
  Transmission Date: 20181010
  Serious: Yes (Disabling)
  Sender: FDA-Public Use
  Company Number: None

PATIENT
  Sex: Female

DRUGS (1)
  1. LEVOTHYROXINE SODIUM TABLETS USP 125MCG (0.125 MG) 90 TABLETS [Suspect]
     Active Substance: LEVOTHYROXINE SODIUM
     Indication: THYROID CANCER
     Dosage: ?          QUANTITY:90 TABLET(S);?
     Route: 048

REACTIONS (6)
  - Fatigue [None]
  - Drug ineffective [None]
  - Alopecia [None]
  - Muscle spasms [None]
  - Therapeutic response changed [None]
  - Product substitution issue [None]
